FAERS Safety Report 7249839-8 (Version None)
Quarter: 2011Q1

REPORT INFORMATION
  Report Type: 
  Country: None (occurrence: None)
  Receive Date: 20110128
  Receipt Date: 20100526
  Transmission Date: 20110831
  Serious: No
  Sender: FDA-Public Use
  Company Number: A0862630A

PATIENT
  Sex: Female

DRUGS (2)
  1. PROVERA [Suspect]
     Route: 065
     Dates: start: 20100503
  2. WELLBUTRIN [Suspect]
     Route: 065
     Dates: start: 20100504

REACTIONS (3)
  - FEELING ABNORMAL [None]
  - FEELING DRUNK [None]
  - DYSARTHRIA [None]
